FAERS Safety Report 17916075 (Version 3)
Quarter: 2022Q1

REPORT INFORMATION
  Report Type: Spontaneous
  Country: JP (occurrence: JP)
  Receive Date: 20200619
  Receipt Date: 20220215
  Transmission Date: 20220424
  Serious: Yes (Other)
  Sender: FDA-Public Use
  Company Number: JP-ELI_LILLY_AND_COMPANY-US202006004041

PATIENT
  Age: 68 Year
  Sex: Male

DRUGS (4)
  1. PORTRAZZA [Suspect]
     Active Substance: NECITUMUMAB
     Indication: Non-small cell lung cancer recurrent
     Dosage: 800 MG, UNKNOWN
     Route: 042
     Dates: start: 20200521
  2. GEMCITABINE HYDROCHLORIDE [Suspect]
     Active Substance: GEMCITABINE HYDROCHLORIDE
     Indication: Lung squamous cell carcinoma recurrent
     Dosage: 1250 MG/M2, OTHER
     Route: 041
  3. CISPLATIN [Concomitant]
     Active Substance: CISPLATIN
     Indication: Lung squamous cell carcinoma recurrent
     Dosage: UNK, UNKNOWN
     Dates: start: 20200521
  4. MAGNESIUM [Concomitant]
     Active Substance: MAGNESIUM
     Indication: Premedication
     Dosage: 8 MEQ, UNKNOWN
     Route: 065

REACTIONS (6)
  - Platelet count decreased [Recovered/Resolved]
  - Neutrophil count decreased [Recovered/Resolved]
  - Hyponatraemia [Unknown]
  - Decreased appetite [Unknown]
  - Constipation [Unknown]
  - Dermatitis acneiform [Recovering/Resolving]

NARRATIVE: CASE EVENT DATE: 20200524
